FAERS Safety Report 4994152-2 (Version None)
Quarter: 2006Q1

REPORT INFORMATION
  Report Type: 
  Country: None (occurrence: None)
  Receive Date: 20060313
  Receipt Date: 20050501
  Transmission Date: 20060701
  Serious: Yes (Other)
  Sender: FDA-Public Use
  Company Number: PHEH2005US03403

PATIENT
  Sex: Female

DRUGS (1)
  1. TRILEPTAL [Suspect]
     Dosage: 75 MG BID
     Dates: start: 20050316

REACTIONS (2)
  - HAEMATOCHEZIA [None]
  - STOMACH DISCOMFORT [None]
